FAERS Safety Report 5317400-8 (Version None)
Quarter: 2007Q2

REPORT INFORMATION
  Report Type: 
  Country: None (occurrence: None)
  Receive Date: 20070504
  Receipt Date: 20070424
  Transmission Date: 20071010
  Serious: Yes (Hospitalization, Other)
  Sender: FDA-Public Use
  Company Number: PT-ABBOTT-07P-130-0365966-00

PATIENT
  Age: 73 Year
  Sex: Female

DRUGS (16)
  1. HYDROCHLOROTHIAZIDE [Suspect]
     Indication: HYPERTENSION
     Dosage: NOT REPORTED
  2. IBUPROFEN [Suspect]
     Indication: OSTEOARTHRITIS
     Dosage: NOT REPORTED
  3. NIMESULIDE [Concomitant]
     Indication: OSTEOARTHRITIS
     Dosage: NOT REPORTED
  4. PAROXETINE [Concomitant]
     Indication: ASTHENIA
     Dosage: NOT REPORTED
  5. PAROXETINE [Concomitant]
     Indication: ANOREXIA
  6. PAROXETINE [Concomitant]
     Indication: NAUSEA
  7. PAROXETINE [Concomitant]
     Indication: VOMITING
  8. PAROXETINE [Concomitant]
     Indication: SOMNOLENCE
  9. PAROXETINE [Concomitant]
     Indication: WEIGHT DECREASED
  10. AMISULPRIDE [Concomitant]
     Indication: ASTHENIA
     Dosage: NOT REPORTED
  11. AMISULPRIDE [Concomitant]
     Indication: ANOREXIA
  12. AMISULPRIDE [Concomitant]
     Indication: NAUSEA
  13. AMISULPRIDE [Concomitant]
     Indication: VOMITING
  14. AMISULPRIDE [Concomitant]
     Indication: SOMNOLENCE
  15. AMISULPRIDE [Concomitant]
     Indication: WEIGHT DECREASED
  16. LOSARTAN POSTASSIUM [Concomitant]
     Indication: HYPERTENSION
     Dosage: NOT REPORTED

REACTIONS (1)
  - NEPHRITIS INTERSTITIAL [None]
